FAERS Safety Report 15325535 (Version 1)
Quarter: 2018Q4

REPORT INFORMATION
  Report Type: Spontaneous
  Country: FR (occurrence: FR)
  Receive Date: 20180828
  Receipt Date: 20180828
  Transmission Date: 20190204
  Serious: Yes (Hospitalization)
  Sender: FDA-Public Use
  Company Number: FR-PFIZER INC-2018337852

PATIENT
  Age: 44 Year
  Sex: Female
  Weight: 65 kg

DRUGS (3)
  1. KETAMINE RENAUDIN [Suspect]
     Active Substance: KETAMINE
     Indication: DEPRESSION
     Dosage: 32 MG, 1X/DAY
     Route: 042
     Dates: start: 20180628, end: 20180628
  2. NARDIL [Suspect]
     Active Substance: PHENELZINE SULFATE
     Indication: DEPRESSION
     Dosage: 30 MG, 1X/DAY
     Route: 048
     Dates: start: 20180628, end: 20180705
  3. SCOPODERM (HYOSCINE) [Suspect]
     Active Substance: SCOPOLAMINE
     Indication: SALIVARY HYPERSECRETION
     Dosage: 1 MG, CYCLIC (EVERY 72 HOURS)
     Route: 062
     Dates: start: 20180628, end: 20180703

REACTIONS (2)
  - Dizziness [Recovered/Resolved]
  - Depersonalisation/derealisation disorder [Recovered/Resolved]

NARRATIVE: CASE EVENT DATE: 20180630
